FAERS Safety Report 6582297-5 (Version None)
Quarter: 2010Q1

REPORT INFORMATION
  Report Type: 
  Country: None (occurrence: None)
  Receive Date: 20100216
  Receipt Date: 20100204
  Transmission Date: 20100710
  Serious: Yes (Hospitalization, Other)
  Sender: FDA-Public Use
  Company Number: US-ELI_LILLY_AND_COMPANY-US200910000309

PATIENT
  Sex: Female

DRUGS (13)
  1. FORTEO [Suspect]
     Indication: OSTEOPOROSIS
     Dosage: 20 UG, DAILY (1/D)
     Dates: start: 20090826
  2. CALCIUM 600 + D [Concomitant]
     Dosage: 600 MG, UNK
  3. VITAMIN D [Concomitant]
     Dosage: 1.25 MG, 2/W
  4. NEORAL [Concomitant]
  5. PREDNISONE [Concomitant]
  6. LEVOTHYROXINE SODIUM [Concomitant]
  7. AVALIDE [Concomitant]
  8. LIPITOR [Concomitant]
  9. ZETIA [Concomitant]
  10. CLONAZEPAM [Concomitant]
  11. DESMOPRESSIN ACETATE [Concomitant]
  12. PEPCID [Concomitant]
  13. ALLOPURINOL [Concomitant]

REACTIONS (2)
  - FALL [None]
  - FEMUR FRACTURE [None]
